FAERS Safety Report 14755593 (Version 2)
Quarter: 2018Q2

REPORT INFORMATION
  Report Type: Report from Study
  Country: None (occurrence: US)
  Receive Date: 20180413
  Receipt Date: 20180423
  Transmission Date: 20180711
  Serious: Yes (Hospitalization)
  Sender: FDA-Public Use
  Company Number: US-ABBVIE-18K-163-2321742-00

PATIENT
  Age: 89 Year
  Sex: Male
  Weight: 81.72 kg

DRUGS (6)
  1. HYDROCODONE [Concomitant]
     Active Substance: HYDROCODONE
     Indication: ARTHRALGIA
  2. MONTELUKAST [Concomitant]
     Active Substance: MONTELUKAST SODIUM
     Indication: HYPERSENSITIVITY
  3. MEN^S MULTI [Concomitant]
     Indication: VITAMIN SUPPLEMENTATION
  4. FLOMAX [Concomitant]
     Active Substance: TAMSULOSIN HYDROCHLORIDE
     Indication: PROSTATOMEGALY
  5. HUMIRA [Suspect]
     Active Substance: ADALIMUMAB
     Indication: PSORIASIS
     Route: 058
     Dates: start: 201710
  6. PREDNISONE. [Concomitant]
     Active Substance: PREDNISONE
     Indication: PSORIASIS

REACTIONS (5)
  - Hypertension [Recovered/Resolved]
  - Hypersensitivity [Unknown]
  - Psoriasis [Not Recovered/Not Resolved]
  - Blood pressure fluctuation [Recovering/Resolving]
  - Extrasystoles [Recovered/Resolved]

NARRATIVE: CASE EVENT DATE: 201802
